FAERS Safety Report 8565008-3 (Version None)
Quarter: 2012Q3

REPORT INFORMATION
  Report Type: 
  Country: None (occurrence: None)
  Receive Date: 20120803
  Receipt Date: 20120730
  Transmission Date: 20120928
  Serious: No
  Sender: FDA-Public Use
  Company Number: US-PFIZER INC-2012184426

PATIENT
  Sex: Male

DRUGS (2)
  1. IBUPROFEN (ADVIL) [Suspect]
     Dosage: 800 MG (TOOK FOUR IBUPROFEN TABLETS OF 200MG ONCE), UNK
  2. IBUPROFEN (ADVIL) [Suspect]
     Indication: BACK PAIN
     Dosage: UNK, AS NEEDED
     Route: 048

REACTIONS (3)
  - HAEMOPTYSIS [None]
  - ABDOMINAL PAIN UPPER [None]
  - OVERDOSE [None]
